FAERS Safety Report 19748479 (Version 3)
Quarter: 2021Q4

REPORT INFORMATION
  Report Type: Report from Study
  Country: CO (occurrence: CO)
  Receive Date: 20210825
  Receipt Date: 20211201
  Transmission Date: 20220303
  Serious: Yes (Life-Threatening, Hospitalization)
  Sender: FDA-Public Use
  Company Number: CO-ABBVIE-21K-036-4053610-00

PATIENT
  Sex: Male
  Weight: 72 kg

DRUGS (2)
  1. ZEMPLAR [Suspect]
     Active Substance: PARICALCITOL
     Indication: Hyperparathyroidism secondary
     Dosage: 1 UNIT ON TUESDAY AND ON SATURDAY
     Route: 042
     Dates: start: 20190829
  2. ZEMPLAR [Suspect]
     Active Substance: PARICALCITOL
     Indication: Chronic kidney disease

REACTIONS (3)
  - Myocardial infarction [Unknown]
  - Myocardial infarction [Recovering/Resolving]
  - Influenza [Recovering/Resolving]

NARRATIVE: CASE EVENT DATE: 20200101
